FAERS Safety Report 13510502 (Version 2)
Quarter: 2017Q2

REPORT INFORMATION
  Report Type: Report from Study
  Country: US (occurrence: US)
  Receive Date: 20170503
  Receipt Date: 20170508
  Transmission Date: 20170830
  Serious: Yes (Other)
  Sender: FDA-Public Use
  Company Number: US-ASTRAZENECA-2017SE42818

PATIENT
  Sex: Female

DRUGS (4)
  1. PROAIR HFA [Concomitant]
     Active Substance: ALBUTEROL SULFATE
  2. SYMBICORT [Suspect]
     Active Substance: BUDESONIDE\FORMOTEROL FUMARATE DIHYDRATE
     Indication: LUNG DISORDER
     Dosage: 160/4.5 MCG, TWO INHALATIONS TWICE A DAY
     Route: 055
     Dates: start: 201702
  3. SYMBICORT [Suspect]
     Active Substance: BUDESONIDE\FORMOTEROL FUMARATE DIHYDRATE
     Indication: LUNG DISORDER
     Dosage: 160/4.5 MCG, TWO INHALATIONS TWICE A DAY
     Route: 055
     Dates: start: 201702
  4. SYMBICORT [Suspect]
     Active Substance: BUDESONIDE\FORMOTEROL FUMARATE DIHYDRATE
     Indication: DYSPNOEA
     Dosage: 160/4.5 MCG, TWO INHALATIONS TWICE A DAY
     Route: 055
     Dates: start: 201702

REACTIONS (12)
  - Weight increased [Unknown]
  - Malaise [Unknown]
  - Colitis [Unknown]
  - Wrong technique in device usage process [Unknown]
  - Off label use [Unknown]
  - Intentional product misuse [Unknown]
  - Product quality issue [Unknown]
  - Cerebrovascular accident [Unknown]
  - Carpal tunnel syndrome [Unknown]
  - Gastrointestinal ulcer [Unknown]
  - Drug dose omission [Unknown]
  - Product use in unapproved indication [Unknown]
